FAERS Safety Report 9721572 (Version 1)
Quarter: 2013Q4

REPORT INFORMATION
  Report Type: Spontaneous
  Country: US (occurrence: US)
  Receive Date: 20131201
  Receipt Date: 20131201
  Transmission Date: 20140711
  Serious: No
  Sender: FDA-Public Use
  Company Number: US-009507513-1311USA011604

PATIENT
  Sex: Female

DRUGS (1)
  1. SAPHRIS [Suspect]
     Dosage: UNK
     Route: 060

REACTIONS (6)
  - Drug intolerance [Unknown]
  - Incorrect route of drug administration [Unknown]
  - Drug prescribing error [Unknown]
  - Wrong technique in drug usage process [Unknown]
  - Prescribed underdose [Unknown]
  - Inappropriate schedule of drug administration [Unknown]
